FAERS Safety Report 14011850 (Version 1)
Quarter: 2017Q3

REPORT INFORMATION
  Report Type: Spontaneous
  Country: DE (occurrence: DE)
  Receive Date: 20170926
  Receipt Date: 20170926
  Transmission Date: 20171128
  Serious: Yes (Hospitalization, Other)
  Sender: FDA-Public Use
  Company Number: DE-DRREDDYS-GER/GER/17/0093449

PATIENT
  Age: 42 Year
  Sex: Female
  Weight: 63 kg

DRUGS (1)
  1. CIPROFLOXACIN 250 MG [Suspect]
     Active Substance: CIPROFLOXACIN
     Indication: CYSTITIS NONINFECTIVE
     Route: 048
     Dates: start: 20170830

REACTIONS (9)
  - Back pain [Unknown]
  - Asthenia [Unknown]
  - Musculoskeletal pain [Unknown]
  - Visual impairment [Unknown]
  - Myalgia [Unknown]
  - Arthralgia [Unknown]
  - Neck pain [Unknown]
  - Neuralgia [Unknown]
  - Vision blurred [Unknown]

NARRATIVE: CASE EVENT DATE: 20170901
